FAERS Safety Report 7315489-8 (Version None)
Quarter: 2011Q1

REPORT INFORMATION
  Report Type: 
  Country: None (occurrence: None)
  Receive Date: 20110218
  Receipt Date: 20110218
  Transmission Date: 20110831
  Serious: Yes (Hospitalization)
  Sender: FDA-Public Use
  Company Number: None

PATIENT
  Age: 84 Year
  Sex: Male
  Weight: 80 kg

DRUGS (12)
  1. ZOCOR [Concomitant]
  2. TYLENOL [Concomitant]
  3. CYMBALTA [Concomitant]
  4. METOPROLOL [Concomitant]
  5. ARTIFICIAL TEARS [Concomitant]
  6. GABAPENTIN [Concomitant]
  7. COLACE [Concomitant]
  8. IRON SULFATETHIAMIN COMPOUND TAB [Concomitant]
  9. COUMADIN [Suspect]
     Indication: ATRIAL FIBRILLATION
     Dosage: 2.5MG DAILY PO RECENT
     Route: 048
  10. VIT D [Concomitant]
  11. BACTRIM DS [Suspect]
     Indication: URINARY TRACT INFECTION
     Dosage: ONE TAB BID PO RECENT
     Route: 048
  12. VICODIN [Concomitant]

REACTIONS (5)
  - COAGULOPATHY [None]
  - THROMBOSIS [None]
  - HIATUS HERNIA [None]
  - INTERNATIONAL NORMALISED RATIO INCREASED [None]
  - OESOPHAGEAL ULCER [None]
